FAERS Safety Report 7356288-0 (Version None)
Quarter: 2011Q1

REPORT INFORMATION
  Report Type: 
  Country: None (occurrence: None)
  Receive Date: 20110308
  Receipt Date: 20110221
  Transmission Date: 20110831
  Serious: Yes (Other)
  Sender: FDA-Public Use
  Company Number: JP-2011-10384

PATIENT

DRUGS (1)
  1. PLETAL [Suspect]

REACTIONS (1)
  - INTESTINAL OBSTRUCTION [None]
